FAERS Safety Report 23378189 (Version 1)
Quarter: 2024Q1

REPORT INFORMATION
  Report Type: Spontaneous
  Country: US (occurrence: US)
  Receive Date: 20240108
  Receipt Date: 20240108
  Transmission Date: 20240409
  Serious: Yes (Hospitalization)
  Sender: FDA-Public Use
  Company Number: US-KYOWAKIRIN-2024KK000100

PATIENT

DRUGS (1)
  1. CRYSVITA [Suspect]
     Active Substance: BUROSUMAB-TWZA
     Indication: Hereditary hypophosphataemic rickets
     Dosage: 27 MG, 1X/2 WEEKS
     Route: 058
     Dates: start: 201806

REACTIONS (2)
  - Hospitalisation [Unknown]
  - Incorrect dose administered [Not Recovered/Not Resolved]
